FAERS Safety Report 19609747 (Version 1)
Quarter: 2021Q3

REPORT INFORMATION
  Report Type: Spontaneous
  Country: US (occurrence: US)
  Receive Date: 20210723
  Receipt Date: 20210723
  Transmission Date: 20211014
  Serious: Yes (Death, Hospitalization)
  Sender: FDA-Public Use
  Company Number: None

PATIENT
  Age: 69 Year
  Sex: Female

DRUGS (23)
  1. OPSUMIT [Suspect]
     Active Substance: MACITENTAN
     Indication: PULMONARY HYPERTENSION
     Route: 048
     Dates: start: 20170501, end: 20210619
  2. DICLOFENAC TOP GEL [Concomitant]
  3. ADVAIR HFA [Concomitant]
     Active Substance: FLUTICASONE PROPIONATE\SALMETEROL XINAFOATE
  4. AZELASTINE NASAL SPRAY [Concomitant]
     Active Substance: AZELASTINE
  5. ASPIRIN. [Concomitant]
     Active Substance: ASPIRIN
  6. LORAZEPAM. [Concomitant]
     Active Substance: LORAZEPAM
  7. MONTELUKAST [Concomitant]
     Active Substance: MONTELUKAST SODIUM
  8. ATORVASTATIN [Concomitant]
     Active Substance: ATORVASTATIN
  9. DABIGATRAN [Concomitant]
     Active Substance: DABIGATRAN
  10. ALPRAZOLAM. [Concomitant]
     Active Substance: ALPRAZOLAM
  11. SPIRIVA RESPIMAT [Concomitant]
     Active Substance: TIOTROPIUM BROMIDE
  12. PREDNISONE. [Concomitant]
     Active Substance: PREDNISONE
  13. ALBUTEROL HFA [Concomitant]
     Active Substance: ALBUTEROL SULFATE
  14. LOSARTAN. [Concomitant]
     Active Substance: LOSARTAN
  15. ESCITALOPRAM [Concomitant]
     Active Substance: ESCITALOPRAM OXALATE
  16. FEXOFENADINE [Concomitant]
     Active Substance: FEXOFENADINE HYDROCHLORIDE
  17. AMLODIPINE [Concomitant]
     Active Substance: AMLODIPINE BESYLATE
  18. PANTOPRAZOLE [Concomitant]
     Active Substance: PANTOPRAZOLE
  19. SERTRALINE [Concomitant]
     Active Substance: SERTRALINE HYDROCHLORIDE
  20. DILTIAZEM. [Concomitant]
     Active Substance: DILTIAZEM
  21. FUROSEMIDE. [Concomitant]
     Active Substance: FUROSEMIDE
  22. METFORMIN [Concomitant]
     Active Substance: METFORMIN HYDROCHLORIDE
  23. GABAPENTIN. [Concomitant]
     Active Substance: GABAPENTIN

REACTIONS (11)
  - Acute kidney injury [None]
  - Left ventricular failure [None]
  - Abdominal distension [None]
  - Atrial fibrillation [None]
  - Tachycardia [None]
  - Cardiac arrest [None]
  - Tricuspid valve incompetence [None]
  - General physical health deterioration [None]
  - Acute respiratory failure [None]
  - Cardiac failure congestive [None]
  - Hypercholesterolaemia [None]

NARRATIVE: CASE EVENT DATE: 20210611
